FAERS Safety Report 8514180-X (Version None)
Quarter: 2012Q2

REPORT INFORMATION
  Report Type: 
  Country: None (occurrence: None)
  Receive Date: 20120406
  Receipt Date: 20111116
  Transmission Date: 20120825
  Serious: Yes (Hospitalization)
  Sender: FDA-Public Use
  Company Number: US-CYPR-2011-000095

PATIENT
  Sex: Male
  Weight: 85.2762 kg

DRUGS (12)
  1. CLOPIDOGREL [Suspect]
     Indication: ANTIPLATELET THERAPY
     Dosage: (75 MG ORAL)
     Route: 048
     Dates: start: 20110212, end: 20111012
  2. TOPROL-XL [Concomitant]
  3. GLYBURIDE [Concomitant]
  4. COREG [Concomitant]
  5. COUMADIN [Concomitant]
  6. ALTACE [Concomitant]
  7. LOPRESSOR [Concomitant]
  8. ASPIRIN [Suspect]
     Indication: CORONARY ARTERY DISEASE
     Dosage: (81 MG)
     Dates: start: 20080326
  9. DOXAZOSIN MESYLATE [Concomitant]
  10. LIPITOR [Concomitant]
  11. OMEGA [Concomitant]
  12. CYPHER STENT [Concomitant]

REACTIONS (1)
  - ATRIAL FIBRILLATION [None]
